FAERS Safety Report 11239437 (Version 1)
Quarter: 2015Q3

REPORT INFORMATION
  Report Type: Spontaneous
  Country: SK (occurrence: None)
  Receive Date: 20150701
  Receipt Date: 20150701
  Transmission Date: 20151125
  Serious: Yes (Other)
  Sender: FDA-Public Use
  Company Number: 2015-11628

PATIENT
  Age: 73 Year
  Sex: Female

DRUGS (6)
  1. ANOPYRIN (ACETYLSALICYLIC ACID) [Concomitant]
  2. TENAXUM (RILMENIDINE) [Concomitant]
  3. EYLEA [Suspect]
     Active Substance: AFLIBERCEPT
     Indication: NEOVASCULAR AGE-RELATED MACULAR DEGENERATION
     Dosage: FIRST DOSE OF EYLEA?
     Dates: start: 20150428
  4. EGILOK (METOPROLOL TARTRATE) [Concomitant]
  5. PREDUCTAL (TRIMETAZIDINE) [Concomitant]
  6. AMLOPIN (AMLODIPINE BESILATE) [Concomitant]

REACTIONS (5)
  - Scab [None]
  - Eczema [None]
  - Skin fissures [None]
  - Palmoplantar keratoderma [None]
  - Dermatitis [None]

NARRATIVE: CASE EVENT DATE: 20150430
